FAERS Safety Report 13408793 (Version 1)
Quarter: 2017Q2

REPORT INFORMATION
  Report Type: Spontaneous
  Country: BE (occurrence: BE)
  Receive Date: 20170406
  Receipt Date: 20170406
  Transmission Date: 20170830
  Serious: Yes (Other)
  Sender: FDA-Public Use
  Company Number: BE-JNJFOC-20170328061

PATIENT
  Sex: Female

DRUGS (2)
  1. PERDOLAN [Suspect]
     Active Substance: ACETAMINOPHEN
     Indication: PAIN
     Route: 065
  2. PERDOLAN [Suspect]
     Active Substance: ACETAMINOPHEN
     Indication: HEADACHE
     Route: 065

REACTIONS (4)
  - Pain [Not Recovered/Not Resolved]
  - Adverse drug reaction [Unknown]
  - Intentional product use issue [Unknown]
  - Lung disorder [Not Recovered/Not Resolved]
